FAERS Safety Report 5495323-1 (Version None)
Quarter: 2007Q4

REPORT INFORMATION
  Report Type: 
  Country: None (occurrence: None)
  Receive Date: 20071024
  Receipt Date: 20071015
  Transmission Date: 20080405
  Serious: Yes (Death, Hospitalization, Other)
  Sender: FDA-Public Use
  Company Number: US-MERCK-0708USA01990

PATIENT
  Age: 87 Year
  Sex: Female
  Weight: 65 kg

DRUGS (2)
  1. FOSAMAX [Suspect]
     Indication: OSTEOPOROSIS
     Route: 048
     Dates: start: 19960408, end: 20060201
  2. CELEBREX [Concomitant]
     Indication: OSTEOARTHRITIS
     Route: 065

REACTIONS (42)
  - ANAEMIA OF CHRONIC DISEASE [None]
  - ANXIETY [None]
  - ARTHRALGIA [None]
  - CARDIAC FAILURE CONGESTIVE [None]
  - COMPRESSION FRACTURE [None]
  - CONTUSION [None]
  - DENTAL FISTULA [None]
  - DEPRESSION [None]
  - DYSPNOEA [None]
  - FALL [None]
  - FATIGUE [None]
  - FRACTURE [None]
  - GASTROENTERITIS VIRAL [None]
  - GASTROOESOPHAGEAL REFLUX DISEASE [None]
  - GINGIVAL ABSCESS [None]
  - GINGIVAL ULCERATION [None]
  - HYPERTENSION [None]
  - HYPOAESTHESIA [None]
  - IMPAIRED HEALING [None]
  - INFLAMMATION [None]
  - INJURY [None]
  - INSOMNIA [None]
  - JAW DISORDER [None]
  - JOINT INJURY [None]
  - JOINT SWELLING [None]
  - KYPHOSIS [None]
  - MUSCLE SPASMS [None]
  - OSTEOMYELITIS [None]
  - OSTEONECROSIS [None]
  - PAIN [None]
  - PERIODONTAL DISEASE [None]
  - PNEUMONIA ASPIRATION [None]
  - POOR PERSONAL HYGIENE [None]
  - RENAL FAILURE CHRONIC [None]
  - RESPIRATORY DISORDER [None]
  - RESPIRATORY DISTRESS [None]
  - SOCIAL AVOIDANT BEHAVIOUR [None]
  - STOMACH DISCOMFORT [None]
  - TOOTH EXTRACTION [None]
  - TOOTHACHE [None]
  - TRANSIENT ISCHAEMIC ATTACK [None]
  - URINARY INCONTINENCE [None]
